FAERS Safety Report 9165466 (Version 4)
Quarter: 2014Q1

REPORT INFORMATION
  Report Type: Spontaneous
  Country: US (occurrence: US)
  Receive Date: 20130315
  Receipt Date: 20140324
  Transmission Date: 20141002
  Serious: Yes (Disabling)
  Sender: FDA-Public Use
  Company Number: US-THROMBOGENICS INC-JET-2013-019

PATIENT
  Age: 51 Year
  Sex: Female

DRUGS (1)
  1. JETREA [Suspect]
     Indication: VITREOUS ADHESIONS
     Dosage: 0.125 MG, ONE TIME DOSE
     Route: 031
     Dates: start: 20130301, end: 20130301

REACTIONS (11)
  - Photopsia [Not Recovered/Not Resolved]
  - Colour blindness acquired [Not Recovered/Not Resolved]
  - Photophobia [Recovered/Resolved]
  - Pupillary reflex impaired [Recovering/Resolving]
  - Mydriasis [Not Recovered/Not Resolved]
  - Iritis [Not Recovered/Not Resolved]
  - Retinal artery occlusion [Not Recovered/Not Resolved]
  - Angiogram retina abnormal [Not Recovered/Not Resolved]
  - Visual impairment [Not Recovered/Not Resolved]
  - Visual acuity reduced [Not Recovered/Not Resolved]
  - Visual field defect [Not Recovered/Not Resolved]
